FAERS Safety Report 17143309 (Version 1)
Quarter: 2019Q4

REPORT INFORMATION
  Report Type: Spontaneous
  Country: US (occurrence: US)
  Receive Date: 20191211
  Receipt Date: 20191211
  Transmission Date: 20200122
  Serious: Yes (Other)
  Sender: FDA-Public Use
  Company Number: US-AMERICAN REGENT INC-20190098

PATIENT
  Age: 9 Year
  Sex: Male

DRUGS (7)
  1. VENOFER [Suspect]
     Active Substance: IRON SUCROSE
  2. CELECOXIB. [Concomitant]
     Active Substance: CELECOXIB
     Indication: PAIN
     Dosage: 100 MG ONCE DAILY AS NEEDED
     Route: 048
  3. VENOFER [Suspect]
     Active Substance: IRON SUCROSE
     Indication: FACTOR VIII DEFICIENCY
     Dosage: 300 MG/ 300 ML(7 MG/KG) INFUSED OVER60- 90 MINUTES
     Route: 042
     Dates: start: 20190108, end: 20190108
  4. VENOFER [Suspect]
     Active Substance: IRON SUCROSE
  5. ONDANSETRON [Concomitant]
     Active Substance: ONDANSETRON
     Dosage: 2.5MGEVERY 6 HOURS PRN
     Route: 048
  6. NOVOEIGHT [Concomitant]
     Active Substance: ANTIHEMOPHILIC FACTOR, HUMAN RECOMBINANT
     Indication: FACTOR VIII DEFICIENCY
     Dosage: 1,500 UNITS 3 TIMES A WEEK
  7. IRON POLYSACCHARIDE [Concomitant]
     Indication: FACTOR VIII DEFICIENCY
     Dosage: 100 MG TWICE DAILY
     Route: 048

REACTIONS (9)
  - Flushing [Recovered/Resolved]
  - Incorrect product administration duration [Unknown]
  - Pain in extremity [Recovered/Resolved]
  - Serum ferritin decreased [Unknown]
  - Paraesthesia [Recovered/Resolved]
  - Hypoaesthesia [Recovered/Resolved]
  - Product use in unapproved indication [Unknown]
  - Urticaria [Recovered/Resolved]
  - Incorrect dose administered [Unknown]

NARRATIVE: CASE EVENT DATE: 20190108
